FAERS Safety Report 25522420 (Version 1)
Quarter: 2025Q3

REPORT INFORMATION
  Report Type: Spontaneous
  Country: EU (occurrence: EU)
  Receive Date: 20250707
  Receipt Date: 20250707
  Transmission Date: 20251020
  Serious: No
  Sender: ALKEM
  Company Number: EU-ALKEM LABORATORIES LIMITED-FR-ALKEM-2024-26091

PATIENT
  Sex: Male

DRUGS (2)
  1. DRONABINOL [Suspect]
     Active Substance: DRONABINOL
     Indication: Small fibre neuropathy
     Dosage: 17.5 MILLIGRAM, QD (7.5 MILLIGRAM IN THE MORNING AND 10 MILLIGRAM IN THE EVENING) (SOFT CAPSULE)
     Route: 065
  2. DRONABINOL [Suspect]
     Active Substance: DRONABINOL
     Route: 065

REACTIONS (1)
  - Pain [Recovered/Resolved]

NARRATIVE: CASE EVENT DATE: 20241001
